FAERS Safety Report 14631520 (Version 1)
Quarter: 2018Q1

REPORT INFORMATION
  Report Type: Spontaneous
  Country: JP (occurrence: JP)
  Receive Date: 20180313
  Receipt Date: 20180313
  Transmission Date: 20180509
  Serious: Yes (Hospitalization, Other)
  Sender: FDA-Public Use
  Company Number: JP-JNJFOC-20170923293

PATIENT
  Age: 88 Year
  Sex: Male

DRUGS (11)
  1. DIGOSIN [Concomitant]
     Active Substance: DIGOXIN
     Indication: ATRIAL FIBRILLATION
     Route: 048
     Dates: start: 20071025
  2. UBRETID [Concomitant]
     Active Substance: DISTIGMINE BROMIDE
     Indication: URINARY RETENTION
     Route: 048
     Dates: start: 20091224
  3. XARELTO [Suspect]
     Active Substance: RIVAROXABAN
     Indication: ATRIAL FIBRILLATION
     Route: 048
     Dates: start: 20140710
  4. XARELTO [Suspect]
     Active Substance: RIVAROXABAN
     Indication: THROMBOSIS PROPHYLAXIS
     Route: 048
     Dates: start: 20140710
  5. ZYLORIC [Concomitant]
     Active Substance: ALLOPURINOL
     Indication: HYPERURICAEMIA
     Route: 048
     Dates: start: 20090430
  6. UBRETID [Concomitant]
     Active Substance: DISTIGMINE BROMIDE
     Indication: URINARY RETENTION
     Route: 048
     Dates: start: 20091224
  7. FUROSEMIDE. [Concomitant]
     Active Substance: FUROSEMIDE
     Indication: CARDIAC DYSFUNCTION
     Route: 048
  8. LIVALO [Concomitant]
     Active Substance: PITAVASTATIN CALCIUM
     Indication: HYPERCHOLESTEROLAEMIA
     Route: 048
     Dates: start: 20081030
  9. MAINTATE [Concomitant]
     Active Substance: BISOPROLOL FUMARATE
     Indication: PULSE ABNORMAL
     Route: 048
     Dates: start: 20071025
  10. URIEF [Concomitant]
     Active Substance: SILODOSIN
     Indication: BENIGN PROSTATIC HYPERPLASIA
     Route: 048
     Dates: start: 20091224
  11. DUTASTERIDE. [Concomitant]
     Active Substance: DUTASTERIDE
     Indication: BENIGN PROSTATIC HYPERPLASIA
     Route: 048
     Dates: start: 20091224

REACTIONS (6)
  - Carotid artery occlusion [Unknown]
  - Bedridden [Unknown]
  - Dementia [Unknown]
  - Subdural haematoma [Unknown]
  - Cerebral atrophy [Unknown]
  - Feeding disorder [Unknown]

NARRATIVE: CASE EVENT DATE: 20170921
